FAERS Safety Report 6731091-0 (Version None)
Quarter: 2010Q2

REPORT INFORMATION
  Report Type: 
  Country: None (occurrence: None)
  Receive Date: 20100518
  Receipt Date: 20100512
  Transmission Date: 20101027
  Serious: Yes (Other)
  Sender: FDA-Public Use
  Company Number: CHPA2010US08411

PATIENT
  Sex: Male

DRUGS (1)
  1. PREVACID 24 HR [Suspect]
     Dosage: UNK, UNK
     Route: 048

REACTIONS (2)
  - HAND FRACTURE [None]
  - INAPPROPRIATE SCHEDULE OF DRUG ADMINISTRATION [None]
